FAERS Safety Report 16337062 (Version 1)
Quarter: 2019Q2

REPORT INFORMATION
  Report Type: Spontaneous
  Country: FR (occurrence: FR)
  Receive Date: 20190521
  Receipt Date: 20190521
  Transmission Date: 20190711
  Serious: Yes (Other)
  Sender: FDA-Public Use
  Company Number: FR-AMGEN-FRASP2019078729

PATIENT
  Age: 59 Year
  Sex: Male

DRUGS (8)
  1. FOLINIC ACID [Concomitant]
     Active Substance: LEUCOVORIN
     Indication: COLORECTAL CANCER METASTATIC
     Dosage: UNK (9 CURES)
     Dates: start: 201606
  2. OXALIPLATIN. [Concomitant]
     Active Substance: OXALIPLATIN
     Indication: COLORECTAL CANCER METASTATIC
     Dosage: UNK (9 CURES)
     Dates: start: 201606
  3. VECTIBIX [Suspect]
     Active Substance: PANITUMUMAB
     Indication: COLORECTAL CANCER METASTATIC
     Dosage: UNK (9 CURES)
     Route: 065
     Dates: start: 201606, end: 20170302
  4. 5 FU [Concomitant]
     Active Substance: FLUOROURACIL
     Indication: COLORECTAL CANCER METASTATIC
     Dosage: UNK (9 CURES)
     Dates: start: 201606
  5. VECTIBIX [Suspect]
     Active Substance: PANITUMUMAB
     Dosage: UNK (1 CURE)
     Route: 065
     Dates: start: 201905
  6. ERBITUX [Concomitant]
     Active Substance: CETUXIMAB
     Indication: COLORECTAL CANCER METASTATIC
     Dosage: UNK
     Dates: start: 201902, end: 20190509
  7. IRINOTECAN [Concomitant]
     Active Substance: IRINOTECAN
     Indication: COLORECTAL CANCER METASTATIC
     Dosage: UNK (11 CURES)
     Dates: start: 20170707, end: 201902
  8. VECTIBIX [Suspect]
     Active Substance: PANITUMUMAB
     Dosage: UNK (11 CURES)
     Route: 065
     Dates: start: 20170707, end: 201902

REACTIONS (1)
  - Colorectal cancer metastatic [Unknown]

NARRATIVE: CASE EVENT DATE: 2017
